FAERS Safety Report 7456079-6 (Version None)
Quarter: 2011Q2

REPORT INFORMATION
  Report Type: 
  Country: None (occurrence: None)
  Receive Date: 20110503
  Receipt Date: 20110427
  Transmission Date: 20111010
  Serious: Yes (Other)
  Sender: FDA-Public Use
  Company Number: US-PFIZER INC-2011091024

PATIENT

DRUGS (1)
  1. NARDIL [Suspect]
     Dosage: UNK

REACTIONS (1)
  - DRUG INTERACTION [None]
